FAERS Safety Report 8160773-1 (Version None)
Quarter: 2012Q1

REPORT INFORMATION
  Report Type: 
  Country: None (occurrence: None)
  Receive Date: 20120223
  Receipt Date: 20120214
  Transmission Date: 20120608
  Serious: Yes (Other)
  Sender: FDA-Public Use
  Company Number: PHHY2012FR013037

PATIENT
  Sex: Female

DRUGS (6)
  1. ARICEPT [Interacting]
     Indication: DEMENTIA ALZHEIMER'S TYPE
     Dosage: 1 DF, QD
  2. ACETAMINOPHEN [Concomitant]
     Dosage: 4 DF, QD
     Dates: start: 20111023
  3. ZOPICLONE [Interacting]
     Indication: INSOMNIA
     Dosage: 1 DF, QD
     Route: 048
  4. LAMISIL [Suspect]
     Indication: ONYCHOMYCOSIS
     Dosage: 1 DF, QD
     Route: 048
     Dates: start: 20110119
  5. TRAMADOL HCL [Interacting]
     Indication: PAIN
     Dosage: 1 DF DAILY IN THE MORNING
     Route: 048
     Dates: start: 20111023, end: 20111208
  6. EQUANIL [Concomitant]

REACTIONS (4)
  - FALL [None]
  - DRUG INTERACTION [None]
  - CONVULSION [None]
  - FEMUR FRACTURE [None]
